FAERS Safety Report 8808174 (Version 2)
Quarter: 2013Q1

REPORT INFORMATION
  Report Type: Spontaneous
  Country: US (occurrence: US)
  Receive Date: 20120925
  Receipt Date: 20130328
  Transmission Date: 20140127
  Serious: No
  Sender: FDA-Public Use
  Company Number: US-BAYER-2012-098675

PATIENT
  Age: 31 Year
  Sex: Male
  Weight: 82 kg

DRUGS (3)
  1. BETASERON [Suspect]
     Dosage: INJECT 0.25 MG (1ML) EVERY OTHER DAY
     Route: 058
  2. MULTIVITAMIN [Concomitant]
     Route: 048
  3. PROTEINS NOS [Concomitant]

REACTIONS (3)
  - Vision blurred [Unknown]
  - Paraesthesia [Unknown]
  - Chills [Unknown]
